FAERS Safety Report 15157476 (Version 2)
Quarter: 2018Q4

REPORT INFORMATION
  Report Type: Spontaneous
  Country: FR (occurrence: FR)
  Receive Date: 20180718
  Receipt Date: 20181108
  Transmission Date: 20190204
  Serious: No
  Sender: FDA-Public Use
  Company Number: FR-BIOVITRUM-2018FR0795

PATIENT
  Age: 26 Month
  Sex: Male

DRUGS (1)
  1. KINERET [Suspect]
     Active Substance: ANAKINRA
     Route: 064

REACTIONS (3)
  - Maternal exposure during pregnancy [Recovered/Resolved]
  - Psychomotor skills impaired [Unknown]
  - Speech disorder developmental [Unknown]
